FAERS Safety Report 20131457 (Version 2)
Quarter: 2021Q4

REPORT INFORMATION
  Report Type: Report from Study
  Country: KR (occurrence: KR)
  Receive Date: 20211130
  Receipt Date: 20211228
  Transmission Date: 20220303
  Serious: Yes (Hospitalization)
  Sender: FDA-Public Use
  Company Number: KR-PFIZER INC-202101646719

PATIENT
  Age: 28 Year
  Sex: Male
  Weight: 75 kg

DRUGS (16)
  1. BESPONSA [Suspect]
     Active Substance: INOTUZUMAB OZOGAMICIN
     Indication: Acute lymphocytic leukaemia
     Dosage: 1.52 MG, VIAL, 1X/DAY
     Route: 042
     Dates: start: 20211115, end: 20211115
  2. METHYLPREDNISOLONE ACEPONATE [Concomitant]
     Active Substance: METHYLPREDNISOLONE ACEPONATE
     Indication: Chronic graft versus host disease in skin
     Dosage: 15 MG, SKIN APPLICATION
     Dates: start: 20211115
  3. ALLEGRA [Concomitant]
     Active Substance: FEXOFENADINE HYDROCHLORIDE
     Indication: Chronic graft versus host disease in skin
     Dosage: 180 MG
     Route: 048
     Dates: start: 20211104
  4. BEPOTEN [Concomitant]
     Indication: Chronic graft versus host disease in skin
     Dosage: 10 MG
     Route: 048
     Dates: start: 20211104
  5. ALLOPURINOL [Concomitant]
     Active Substance: ALLOPURINOL
     Indication: Prophylaxis
     Dosage: 100 MG
     Route: 048
     Dates: start: 20211115, end: 20211115
  6. HYDROCORTISONE SODIUM SUCCINATE [Concomitant]
     Active Substance: HYDROCORTISONE SODIUM SUCCINATE
     Indication: Prophylaxis
     Dosage: 100 MG
     Route: 042
     Dates: start: 20211115, end: 20211115
  7. DESOWEN [Concomitant]
     Active Substance: DESONIDE
     Indication: Chronic graft versus host disease in skin
     Dosage: DESOWEN LOTION, 120 ML, SKIN APPLICATION
     Dates: start: 20211122, end: 20211122
  8. K CAB [Concomitant]
     Indication: Prophylaxis
     Dosage: 50 MG
     Route: 048
     Dates: start: 20211104
  9. PHENIRAMINE [Concomitant]
     Active Substance: PHENIRAMINE
     Indication: Prophylaxis
     Dosage: 4 MG
     Route: 042
     Dates: start: 20211115, end: 20211115
  10. SULFAMETHOXAZOLE\TRIMETHOPRIM [Concomitant]
     Active Substance: SULFAMETHOXAZOLE\TRIMETHOPRIM
     Indication: Prophylaxis
     Dosage: TRIMETHOPRIM AND SULFAMETHOXAZOLE: COTRIMOXAZOLE, 80/400 MG
     Route: 048
     Dates: start: 20211104
  11. SODIUM BICARBONATE [Concomitant]
     Active Substance: SODIUM BICARBONATE
     Indication: Prophylaxis
     Dosage: 20 MEQ/20ML (PE)
     Route: 042
     Dates: start: 20211115, end: 20211115
  12. PREDNISOLONE [Concomitant]
     Active Substance: PREDNISOLONE
     Indication: Chronic graft versus host disease in skin
     Dosage: 5 MG
     Route: 048
     Dates: start: 20211104
  13. TYLENOL [Concomitant]
     Active Substance: ACETAMINOPHEN
     Indication: Prophylaxis
     Dosage: 650 MG, 8HR ER EXTENDED RELIEF
     Route: 048
     Dates: start: 20211111, end: 20211115
  14. TYLENOL [Concomitant]
     Active Substance: ACETAMINOPHEN
     Dosage: 650 MG, 8HR ER EXTENDED RELIEF
     Route: 048
     Dates: start: 20211122
  15. URSODIOL [Concomitant]
     Active Substance: URSODIOL
     Indication: Prophylaxis
     Dosage: 200 MG
     Route: 048
     Dates: start: 20211104
  16. XYZAL [Concomitant]
     Active Substance: LEVOCETIRIZINE DIHYDROCHLORIDE
     Indication: Chronic graft versus host disease in skin
     Dosage: 5 MG
     Route: 048
     Dates: start: 20211115

REACTIONS (2)
  - Cytopenia [Recovering/Resolving]
  - Chronic graft versus host disease oral [Recovering/Resolving]

NARRATIVE: CASE EVENT DATE: 20211118
